FAERS Safety Report 7621345-8 (Version None)
Quarter: 2011Q3

REPORT INFORMATION
  Report Type: 
  Country: None (occurrence: None)
  Receive Date: 20110719
  Receipt Date: 20110705
  Transmission Date: 20111222
  Serious: Yes (Hospitalization, Other)
  Sender: FDA-Public Use
  Company Number: US-BAYER-2011-035781

PATIENT
  Age: 22 Year
  Sex: Female
  Weight: 73.016 kg

DRUGS (9)
  1. NAUSEA MEDICATION [Concomitant]
  2. BREATHING MEDICATION [Concomitant]
  3. NARCOTIC PAIN MEDICATION [Concomitant]
  4. YASMIN [Suspect]
     Indication: CONTRACEPTION
     Dosage: UNK
     Route: 048
     Dates: start: 20030317, end: 20030706
  5. NEXIUM [Concomitant]
     Indication: GASTROOESOPHAGEAL REFLUX DISEASE
     Dosage: UNK UNK, QD
     Route: 048
     Dates: start: 20000101, end: 20040101
  6. YASMIN [Suspect]
     Indication: MENSTRUATION IRREGULAR
  7. ZITHROMAX [Concomitant]
     Indication: BRONCHITIS
  8. AMITRIPTYLINE HCL [Concomitant]
     Indication: INSOMNIA
     Dosage: UNK
     Route: 048
     Dates: start: 20030301, end: 20030601
  9. CONSTIPATION MEDICATION [Concomitant]

REACTIONS (10)
  - INJURY [None]
  - ANXIETY [None]
  - STRESS [None]
  - FEAR [None]
  - PULMONARY EMBOLISM [None]
  - DECREASED APPETITE [None]
  - CHEST PAIN [None]
  - CHEST DISCOMFORT [None]
  - DYSPNOEA [None]
  - COUGH [None]
